FAERS Safety Report 9678015 (Version 2)
Quarter: 2013Q4

REPORT INFORMATION
  Report Type: Spontaneous
  Country: IN (occurrence: None)
  Receive Date: 20131106
  Receipt Date: 20131115
  Transmission Date: 20140711
  Serious: Yes (Other)
  Sender: FDA-Public Use
  Company Number: AUR-APL-2013-09112

PATIENT
  Age: 35 Year
  Sex: Male

DRUGS (4)
  1. SERTRALINE (SERTRALINE) [Suspect]
     Indication: OBSESSIVE-COMPULSIVE DISORDER
     Dosage: 1 D
  2. RISPERIDONE (RISPERIDONE) [Suspect]
     Indication: OBSESSIVE-COMPULSIVE DISORDER
     Dosage: 1 D
  3. CLOMIPRAMINE (CLOMIPRAMINE) [Suspect]
     Indication: OBSESSIVE-COMPULSIVE DISORDER
     Dosage: 1 D
  4. LITHIUM (LITHIUM) [Suspect]
     Indication: OBSESSIVE-COMPULSIVE DISORDER
     Dosage: 1 D

REACTIONS (9)
  - Serotonin syndrome [None]
  - Hallucination, auditory [None]
  - Muscle twitching [None]
  - Gait disturbance [None]
  - Hyperhidrosis [None]
  - Hypertension [None]
  - Tremor [None]
  - Myoclonus [None]
  - Ataxia [None]
